FAERS Safety Report 10250402 (Version 1)
Quarter: 2014Q2

REPORT INFORMATION
  Report Type: Spontaneous
  Country: US (occurrence: None)
  Receive Date: 20140618
  Receipt Date: 20140618
  Transmission Date: 20141212
  Serious: Yes (Other)
  Sender: FDA-Public Use
  Company Number: A1076916A

PATIENT
  Age: 45 Year
  Sex: Female

DRUGS (1)
  1. SOIDUM FLUORIDE + POTASSIUM NITRATE TOOTHPASTE (SODIUM FLUORIDE = POTASSI) SENSODYNE PRONAMEL [Suspect]
     Indication: DENTAL CARE
     Route: 004

REACTIONS (10)
  - Oral discomfort [None]
  - Oral mucosal blistering [None]
  - Tongue blistering [None]
  - Oropharyngeal blistering [None]
  - Stomatitis [None]
  - Glossodynia [None]
  - Throat irritation [None]
  - Oral pain [None]
  - Aphagia [None]
  - Hypophagia [None]
